FAERS Safety Report 7201289-6 (Version None)
Quarter: 2010Q4

REPORT INFORMATION
  Report Type: 
  Country: None (occurrence: None)
  Receive Date: 20101215
  Receipt Date: 20101130
  Transmission Date: 20110411
  Serious: Yes (Hospitalization)
  Sender: FDA-Public Use
  Company Number: 100017301

PATIENT
  Age: 35 Year
  Sex: Female
  Weight: 52 kg

DRUGS (3)
  1. ESCITALOPRAM [Suspect]
     Indication: DEPRESSION
     Dosage: 5 MG, (5MG, 1 IN 1 D),ORAL
     Route: 048
     Dates: start: 20101028, end: 20101103
  2. ADVIL [Suspect]
     Dosage: 200 T0 800 MG, ORAL
     Route: 048
     Dates: start: 20101028
  3. SERESTA (OCAZEPAM) (TABLETS) (OXAZEPAM) [Concomitant]

REACTIONS (8)
  - ANXIETY [None]
  - DECREASED APPETITE [None]
  - DYSAESTHESIA [None]
  - HAEMATEMESIS [None]
  - HEADACHE [None]
  - MALAISE [None]
  - NAUSEA [None]
  - VOMITING [None]
